FAERS Safety Report 19111087 (Version 1)
Quarter: 2021Q2

REPORT INFORMATION
  Report Type: Spontaneous
  Country: CN (occurrence: CN)
  Receive Date: 20210408
  Receipt Date: 20210408
  Transmission Date: 20210717
  Serious: Yes (Other)
  Sender: FDA-Public Use
  Company Number: CN-B.I. PHARMACEUTICALS,INC./RIDGEFIELD-2021-BI-095172

PATIENT
  Age: 81 Year
  Sex: Female
  Weight: 63 kg

DRUGS (6)
  1. SACUBITRIL;VALSARTAN [Concomitant]
     Active Substance: SACUBITRIL\VALSARTAN
     Indication: CARDIAC FAILURE
     Route: 048
     Dates: start: 20210106, end: 20210323
  2. METFORMIN HYDROCHLORIDE. [Concomitant]
     Active Substance: METFORMIN HYDROCHLORIDE
     Indication: DIABETES MELLITUS
     Route: 048
     Dates: start: 20210109, end: 20210323
  3. ATORVASTATIN CALCIUM. [Concomitant]
     Active Substance: ATORVASTATIN CALCIUM
     Indication: ARTERIOSCLEROTIC RETINOPATHY
     Route: 048
     Dates: start: 20210106, end: 20210323
  4. PRADAXA [Suspect]
     Active Substance: DABIGATRAN ETEXILATE MESYLATE
     Indication: ANTICOAGULATION DRUG LEVEL
     Route: 048
     Dates: start: 20210106, end: 20210323
  5. PROTAMINE RECOMBINANT HUMAN INSULIN [Concomitant]
     Indication: DIABETES MELLITUS
     Route: 058
     Dates: start: 20210123, end: 20210323
  6. FEBUXOSTAT. [Concomitant]
     Active Substance: FEBUXOSTAT
     Indication: HYPERURICAEMIA
     Route: 048
     Dates: start: 20210109, end: 20210323

REACTIONS (1)
  - Thrombin time prolonged [Recovering/Resolving]

NARRATIVE: CASE EVENT DATE: 20210323
